FAERS Safety Report 9959444 (Version 1)
Quarter: 2014Q1

REPORT INFORMATION
  Report Type: Report from Study
  Country: US (occurrence: US)
  Receive Date: 20140305
  Receipt Date: 20140305
  Transmission Date: 20141002
  Serious: No
  Sender: FDA-Public Use
  Company Number: US-ABBVIE-13P-163-1106871-00

PATIENT
  Age: 71 Year
  Sex: Female

DRUGS (7)
  1. HUMIRA [Suspect]
     Indication: PSORIATIC ARTHROPATHY
     Route: 058
     Dates: start: 20130417
  2. METHOTREXATE [Concomitant]
     Indication: PRODUCT USED FOR UNKNOWN INDICATION
  3. CELEBREX [Concomitant]
     Indication: PRODUCT USED FOR UNKNOWN INDICATION
     Dosage: HIGHER DOSE EVERY DAY
  4. MORE PILLS [Concomitant]
     Indication: PSORIATIC ARTHROPATHY
  5. MORE PILLS [Concomitant]
     Indication: SJOGREN^S SYNDROME
  6. MORE PILLS [Concomitant]
     Indication: HYPERTENSION
  7. MORE PILLS [Concomitant]
     Indication: HYPOTHYROIDISM

REACTIONS (2)
  - Arthralgia [Not Recovered/Not Resolved]
  - Insomnia [Not Recovered/Not Resolved]
